FAERS Safety Report 6840031-5 (Version None)
Quarter: 2010Q3

REPORT INFORMATION
  Report Type: 
  Country: None (occurrence: None)
  Receive Date: 20100713
  Receipt Date: 20100713
  Transmission Date: 20110219
  Serious: Yes (Other)
  Sender: FDA-Public Use
  Company Number: None

PATIENT
  Sex: Male
  Weight: 93.441 kg

DRUGS (13)
  1. GABAPENTIN [Suspect]
     Indication: PAIN MANAGEMENT
     Dosage: TOOK 1 TABLET
  2. GABAPENTIN [Suspect]
     Indication: SURGERY
     Dosage: TOOK 1 TABLET
  3. PREDNISONE [Concomitant]
  4. IMURAN [Concomitant]
  5. IMODIUM [Concomitant]
  6. IMITREX [Concomitant]
  7. PROSAC [Concomitant]
  8. LITHIUM [Concomitant]
  9. KLONOPIN [Concomitant]
  10. METOPROLOL [Concomitant]
  11. CALCIUM [Concomitant]
  12. POTASSIUM CHLORIDE [Concomitant]
  13. PRILOSEC [Concomitant]

REACTIONS (3)
  - DEPRESSION [None]
  - DISORIENTATION [None]
  - SUICIDAL IDEATION [None]
